FAERS Safety Report 6390871-4 (Version None)
Quarter: 2009Q4

REPORT INFORMATION
  Report Type: 
  Country: None (occurrence: None)
  Receive Date: 20091006
  Receipt Date: 20091001
  Transmission Date: 20100525
  Serious: Yes (Death, Hospitalization)
  Sender: FDA-Public Use
  Company Number: BR-ABBOTT-09P-020-0600645-00

PATIENT
  Sex: Male
  Weight: 65 kg

DRUGS (3)
  1. HUMIRA [Suspect]
     Indication: RHEUMATOID ARTHRITIS
     Route: 058
     Dates: start: 20090301, end: 20090910
  2. UNKNOWN THERAPY [Concomitant]
     Indication: HYPERTENSION
  3. PHENOBARBITAL (GARDENAL) [Concomitant]
     Indication: CEREBRAL DISORDER

REACTIONS (1)
  - PANCREATITIS ACUTE [None]
